FAERS Safety Report 15262781 (Version 1)
Quarter: 2018Q3

REPORT INFORMATION
  Report Type: Spontaneous
  Country: JP (occurrence: JP)
  Receive Date: 20180809
  Receipt Date: 20180809
  Transmission Date: 20181010
  Serious: Yes (Hospitalization)
  Sender: FDA-Public Use
  Company Number: JP-ALLERGAN-1839417US

PATIENT
  Age: 66 Year
  Sex: Female

DRUGS (5)
  1. MEMANTINE HCL ? BP [Suspect]
     Active Substance: MEMANTINE
     Indication: POSTOPERATIVE DELIRIUM
     Route: 065
  2. QUETIAPINE FUMARATE. [Concomitant]
     Active Substance: QUETIAPINE FUMARATE
     Indication: PRODUCT USED FOR UNKNOWN INDICATION
     Route: 065
  3. YOKUKANSAN [Suspect]
     Active Substance: HERBALS
     Indication: POSTOPERATIVE DELIRIUM
     Route: 065
  4. HALOPERIDOL. [Concomitant]
     Active Substance: HALOPERIDOL
     Indication: PRODUCT USED FOR UNKNOWN INDICATION
     Route: 065
  5. RISPERIDONE. [Concomitant]
     Active Substance: RISPERIDONE
     Indication: PRODUCT USED FOR UNKNOWN INDICATION
     Route: 065

REACTIONS (2)
  - Interstitial lung disease [Recovering/Resolving]
  - Off label use [Unknown]
